FAERS Safety Report 16952684 (Version 1)
Quarter: 2019Q4

REPORT INFORMATION
  Report Type: Spontaneous
  Country: US (occurrence: US)
  Receive Date: 20191023
  Receipt Date: 20191023
  Transmission Date: 20200122
  Serious: No
  Sender: FDA-Public Use
  Company Number: US-VIFOR (INTERNATIONAL) INC.-VIT-2019-09451

PATIENT
  Age: 70 Year
  Sex: Male

DRUGS (2)
  1. VELTASSA [Suspect]
     Active Substance: PATIROMER
     Indication: LIVER DISORDER
     Route: 048
     Dates: end: 201909
  2. VELTASSA [Suspect]
     Active Substance: PATIROMER
     Indication: RENAL DISORDER

REACTIONS (3)
  - Liver disorder [Unknown]
  - Product use in unapproved indication [Unknown]
  - Renal disorder [Unknown]

NARRATIVE: CASE EVENT DATE: 20190918
